FAERS Safety Report 6579916-6 (Version None)
Quarter: 2010Q1

REPORT INFORMATION
  Report Type: 
  Country: None (occurrence: None)
  Receive Date: 20100212
  Receipt Date: 20100208
  Transmission Date: 20100710
  Serious: Yes (Life-Threatening)
  Sender: FDA-Public Use
  Company Number: GXKR2010DE01567

PATIENT
  Age: 86 Year
  Sex: Female
  Weight: 78 kg

DRUGS (4)
  1. ACETYLSALICYLIC ACID SRT [Suspect]
     Indication: CORONARY ARTERY DISEASE
     Dosage: 1 DF, QD
     Route: 048
     Dates: start: 20100106, end: 20100115
  2. PLAVIX [Suspect]
     Indication: CORONARY ARTERY DISEASE
     Dosage: 75 MG, QD
     Route: 048
     Dates: start: 20100106, end: 20100115
  3. MARCUMAR [Suspect]
     Indication: ATRIAL FIBRILLATION
     Dosage: UNK
     Route: 048
     Dates: start: 20100106, end: 20100115
  4. VOLTAREN [Suspect]
     Indication: BONE PAIN
     Dosage: UNK
     Route: 048
     Dates: start: 20100106

REACTIONS (2)
  - FOREIGN BODY ASPIRATION [None]
  - UPPER GASTROINTESTINAL HAEMORRHAGE [None]
